FAERS Safety Report 7094333-0 (Version None)
Quarter: 2010Q4

REPORT INFORMATION
  Report Type: 
  Country: None (occurrence: None)
  Receive Date: 20101102
  Receipt Date: 20101019
  Transmission Date: 20110411
  Serious: Yes (Other)
  Sender: FDA-Public Use
  Company Number: DSA_44161_2010

PATIENT
  Sex: Male

DRUGS (1)
  1. BUPROPION HCL [Suspect]
     Indication: DEPRESSION
     Dosage: (150 MG DAILY ORAL)
     Route: 048
     Dates: start: 20090101

REACTIONS (2)
  - PHOTOPSIA [None]
  - RETINAL TEAR [None]
